FAERS Safety Report 8228579-2 (Version None)
Quarter: 2012Q1

REPORT INFORMATION
  Report Type: 
  Country: None (occurrence: None)
  Receive Date: 20120322
  Receipt Date: 20110330
  Transmission Date: 20120608
  Serious: Yes (Other)
  Sender: FDA-Public Use
  Company Number: US-BRISTOL-MYERS SQUIBB COMPANY-15645195

PATIENT
  Age: 6 Decade
  Sex: Male

DRUGS (3)
  1. BENADRYL [Concomitant]
     Indication: PREMEDICATION
  2. PEPCID [Concomitant]
     Indication: PREMEDICATION
  3. ERBITUX [Suspect]
     Indication: HEAD AND NECK CANCER
     Dosage: ERBITUX  USING 100MG VIAL, TEST DOSE
     Dates: start: 20110324

REACTIONS (2)
  - RESPIRATORY ARREST [None]
  - PULSE PRESSURE DECREASED [None]
